FAERS Safety Report 8362888-1 (Version None)
Quarter: 2012Q2

REPORT INFORMATION
  Report Type: 
  Country: None (occurrence: None)
  Receive Date: 20120514
  Receipt Date: 20120426
  Transmission Date: 20120825
  Serious: Yes (Hospitalization)
  Sender: FDA-Public Use
  Company Number: 2011SGN00154

PATIENT
  Age: 80 Year
  Sex: Male
  Weight: 78.5 kg

DRUGS (12)
  1. CRESTOR [Concomitant]
  2. ALLOPURINOL [Concomitant]
  3. SYNTHROID [Concomitant]
  4. AGGRENOX [Concomitant]
  5. PROTONIX [Concomitant]
  6. FLOMAX [Concomitant]
  7. DOXEPIN HCL [Concomitant]
  8. WELLBUTRIN [Concomitant]
  9. DIGOXIN (BETA-ACETYLDIGOXIN) [Concomitant]
  10. CIPRO [Concomitant]
  11. SGN-35 (CAC10-VCMMAE) INJECTION [Suspect]
     Indication: HODGKIN'S DISEASE
     Dosage: 1.8 MG/KG, Q21D, INTRAVENOUS
     Route: 042
     Dates: start: 20110706, end: 20110706
  12. PROSCAR [Concomitant]

REACTIONS (8)
  - TACHYCARDIA [None]
  - CONDITION AGGRAVATED [None]
  - ANAEMIA [None]
  - ATRIAL FLUTTER [None]
  - PYREXIA [None]
  - DIASTOLIC DYSFUNCTION [None]
  - PLEURAL EFFUSION [None]
  - LUNG INFILTRATION [None]
